FAERS Safety Report 7656703-9 (Version None)
Quarter: 2011Q3

REPORT INFORMATION
  Report Type: 
  Country: None (occurrence: None)
  Receive Date: 20110801
  Receipt Date: 20110715
  Transmission Date: 20111222
  Serious: Yes (Death, Life-Threatening, Hospitalization, Other)
  Sender: FDA-Public Use
  Company Number: 2011MA008958

PATIENT
  Age: 40 Year
  Sex: Female

DRUGS (3)
  1. SERTRALINE HYDROCHLORIDE [Suspect]
     Indication: MULTIPLE DRUG OVERDOSE
  2. RISPERIDONE [Suspect]
     Indication: MULTIPLE DRUG OVERDOSE
  3. HYDROCHLOROTHIAZIDE [Suspect]
     Indication: MULTIPLE DRUG OVERDOSE

REACTIONS (18)
  - INTENTIONAL OVERDOSE [None]
  - HAEMODIALYSIS [None]
  - HYPOGLYCAEMIA [None]
  - HYPOTENSION [None]
  - VENTRICULAR TACHYCARDIA [None]
  - METABOLIC ACIDOSIS [None]
  - BLOOD PRESSURE INCREASED [None]
  - ABDOMINAL TENDERNESS [None]
  - HYPERKALAEMIA [None]
  - VOMITING [None]
  - ASTHENIA [None]
  - RESPIRATORY FAILURE [None]
  - CARDIAC ARREST [None]
  - MUCOUS MEMBRANE DISORDER [None]
  - ACUTE MYOCARDIAL INFARCTION [None]
  - LACTIC ACIDOSIS [None]
  - LETHARGY [None]
  - KUSSMAUL RESPIRATION [None]
